FAERS Safety Report 9495356 (Version 4)
Quarter: 2015Q3

REPORT INFORMATION
  Report Type: Spontaneous
  Country: JP (occurrence: JP)
  Receive Date: 20130903
  Receipt Date: 20150812
  Transmission Date: 20151125
  Serious: Yes (Disabling, Other)
  Sender: FDA-Public Use
  Company Number: JP-GLAXOSMITHKLINE-B0895354A

PATIENT
  Age: 68 Year
  Sex: Male
  Weight: 56 kg

DRUGS (17)
  1. ONCOVIN [Suspect]
     Active Substance: VINCRISTINE SULFATE
     Route: 041
     Dates: start: 20130614, end: 20130614
  2. ONCOVIN [Suspect]
     Active Substance: VINCRISTINE SULFATE
     Route: 041
     Dates: start: 20130723, end: 20130723
  3. CYLOCIDE [Suspect]
     Active Substance: CYTARABINE
     Indication: T-CELL TYPE ACUTE LEUKAEMIA
     Route: 041
     Dates: start: 20130520, end: 20130521
  4. NELARABINE [Suspect]
     Active Substance: NELARABINE
     Indication: T-CELL TYPE ACUTE LEUKAEMIA
     Dosage: 1600 MG, QOD
     Route: 042
     Dates: start: 20130402, end: 20130406
  5. NELARABINE [Suspect]
     Active Substance: NELARABINE
     Indication: T-CELL TYPE ACUTE LEUKAEMIA
     Dosage: 1600 MG, QOD
     Route: 042
     Dates: start: 20130819, end: 20130823
  6. ONCOVIN [Suspect]
     Active Substance: VINCRISTINE SULFATE
     Route: 041
     Dates: start: 20130218, end: 20130218
  7. ONCOVIN [Suspect]
     Active Substance: VINCRISTINE SULFATE
     Route: 041
     Dates: start: 20130225, end: 20130225
  8. ONCOVIN [Suspect]
     Active Substance: VINCRISTINE SULFATE
     Route: 041
     Dates: start: 20130730, end: 20130730
  9. LEUKERIN [Concomitant]
     Active Substance: MERCAPTOPURINE
     Indication: T-CELL TYPE ACUTE LEUKAEMIA
     Route: 051
     Dates: start: 20130409, end: 20130419
  10. ONCOVIN [Suspect]
     Active Substance: VINCRISTINE SULFATE
     Route: 041
     Dates: start: 20130304, end: 20130304
  11. ONCOVIN [Suspect]
     Active Substance: VINCRISTINE SULFATE
     Route: 041
     Dates: start: 20130716, end: 20130716
  12. ENDOXAN [Concomitant]
     Active Substance: CYCLOPHOSPHAMIDE
     Indication: T-CELL TYPE ACUTE LEUKAEMIA
     Route: 051
     Dates: start: 20130409, end: 20130409
  13. ONCOVIN [Suspect]
     Active Substance: VINCRISTINE SULFATE
     Route: 041
     Dates: start: 20130628, end: 20130628
  14. CYLOCIDE [Suspect]
     Active Substance: CYTARABINE
     Indication: T-CELL TYPE ACUTE LEUKAEMIA
     Route: 041
     Dates: start: 20130409, end: 20130413
  15. CYLOCIDE [Suspect]
     Active Substance: CYTARABINE
     Indication: T-CELL TYPE ACUTE LEUKAEMIA
     Route: 041
     Dates: start: 20130416, end: 20130419
  16. CYLOCIDE [Suspect]
     Active Substance: CYTARABINE
     Indication: T-CELL TYPE ACUTE LEUKAEMIA
     Route: 041
     Dates: start: 20130826, end: 20130830
  17. PREDONINE [Concomitant]
     Active Substance: PREDNISOLONE\PREDNISOLONE ACETATE\PREDNISOLONE SODIUM SUCCINATE
     Indication: RASH
     Route: 048
     Dates: start: 20130402, end: 20130412

REACTIONS (10)
  - Hyperaesthesia [Recovered/Resolved]
  - Sensory disturbance [Unknown]
  - Dizziness [Unknown]
  - Muscular weakness [Unknown]
  - Muscular weakness [Unknown]
  - Coordination abnormal [Unknown]
  - Fall [Unknown]
  - Polyneuropathy [Recovered/Resolved with Sequelae]
  - Skin burning sensation [Recovered/Resolved]
  - Pain of skin [Recovered/Resolved]

NARRATIVE: CASE EVENT DATE: 201305
